FAERS Safety Report 5530644-5 (Version None)
Quarter: 2007Q4

REPORT INFORMATION
  Report Type: 
  Country: None (occurrence: None)
  Receive Date: 20071130
  Receipt Date: 20071127
  Transmission Date: 20080405
  Serious: Yes (Other)
  Sender: FDA-Public Use
  Company Number: B0497162A

PATIENT
  Age: 47 Year
  Sex: Male
  Weight: 91 kg

DRUGS (3)
  1. ZYBAN [Suspect]
     Indication: SMOKING CESSATION THERAPY
     Dosage: 300MG PER DAY
     Route: 048
     Dates: start: 20071011, end: 20071103
  2. BECLOMETHASONE DIPROPIONATE [Concomitant]
     Indication: ASTHMA
     Route: 055
     Dates: start: 20060907
  3. VENTOLIN [Concomitant]
     Indication: ASTHMA
     Route: 055
     Dates: start: 20061031

REACTIONS (3)
  - OCULAR HYPERAEMIA [None]
  - SWELLING [None]
  - URTICARIA [None]
